FAERS Safety Report 12058231 (Version 1)
Quarter: 2016Q1

REPORT INFORMATION
  Report Type: Spontaneous
  Country: US (occurrence: None)
  Receive Date: 20160208
  Receipt Date: 20160208
  Transmission Date: 20160526
  Serious: No
  Sender: FDA-Public Use
  Company Number: None

PATIENT
  Age: 53 Year
  Sex: Female

DRUGS (6)
  1. AMLODIPINE [Concomitant]
     Active Substance: AMLODIPINE BESYLATE
  2. IBRANCE [Suspect]
     Active Substance: PALBOCICLIB
     Indication: BREAST CANCER
     Dosage: 125MG QD1-21 THEN 7 OFF ORAL
     Route: 048
     Dates: start: 20151117
  3. CALCIUM +D [Concomitant]
     Active Substance: CALCIUM\VITAMIN D
  4. LOSARTAN. [Concomitant]
     Active Substance: LOSARTAN
  5. LETROZOLE. [Concomitant]
     Active Substance: LETROZOLE
  6. MULTIVITAMIN [Concomitant]
     Active Substance: VITAMINS

REACTIONS (3)
  - Injury [None]
  - Alopecia [None]
  - Drug dose omission [None]

NARRATIVE: CASE EVENT DATE: 201512
